FAERS Safety Report 5335851-2 (Version None)
Quarter: 2007Q2

REPORT INFORMATION
  Report Type: 
  Country: None (occurrence: None)
  Receive Date: 20070228
  Receipt Date: 20070109
  Transmission Date: 20071010
  Serious: No
  Sender: FDA-Public Use
  Company Number: S07-USA-00089-01

PATIENT
  Sex: Male

DRUGS (3)
  1. CAMPRAL [Suspect]
     Indication: ALCOHOLISM
     Dates: start: 20061201
  2. ANTABUSE [Suspect]
     Indication: ALCOHOLISM
     Dates: start: 20061201
  3. ANTIDEPRESSANT (NOS) [Suspect]
     Dates: start: 20061201

REACTIONS (1)
  - DYSSTASIA [None]
